FAERS Safety Report 23915625 (Version 4)
Quarter: 2025Q2

REPORT INFORMATION
  Report Type: Spontaneous
  Country: US (occurrence: US)
  Receive Date: 20240529
  Receipt Date: 20250421
  Transmission Date: 20250717
  Serious: No
  Sender: PFIZER
  Company Number: US-PFIZER INC-2021123354

PATIENT
  Age: 64 Year
  Sex: Female

DRUGS (3)
  1. EUCRISA [Suspect]
     Active Substance: CRISABOROLE
     Indication: Eczema
     Dates: end: 2021
  2. EUCRISA [Suspect]
     Active Substance: CRISABOROLE
     Dates: start: 2024
  3. EUCRISA [Suspect]
     Active Substance: CRISABOROLE

REACTIONS (6)
  - Stress [Unknown]
  - Condition aggravated [Not Recovered/Not Resolved]
  - Skin haemorrhage [Unknown]
  - Skin discolouration [Unknown]
  - Haemorrhage [Unknown]
  - Expired product administered [Unknown]
